FAERS Safety Report 7225087-2 (Version None)
Quarter: 2011Q1

REPORT INFORMATION
  Report Type: 
  Country: None (occurrence: None)
  Receive Date: 20110113
  Receipt Date: 20110113
  Transmission Date: 20110831
  Serious: Yes (Other)
  Sender: FDA-Public Use
  Company Number: US-PFIZER INC-2010074226

PATIENT
  Sex: Female
  Weight: 77 kg

DRUGS (5)
  1. HYDROCHLOROTHIAZIDE [Suspect]
     Dosage: UNK
     Dates: start: 20100101
  2. PRISTIQ [Suspect]
     Indication: DEPRESSION
     Dosage: 100 MG, DAILY
     Dates: start: 20100101, end: 20100401
  3. LOVASTATIN [Suspect]
     Indication: HYPERCHOLESTEROLAEMIA
     Dosage: 800 MG, 4X/DAY
  4. NORVASC [Suspect]
     Indication: HYPERTENSION
     Dosage: UNK
     Dates: end: 20100101
  5. GEMFIBROZIL [Suspect]
     Dosage: 800 MG, 4X/DAY
     Dates: end: 20100101

REACTIONS (7)
  - LOSS OF CONSCIOUSNESS [None]
  - NAUSEA [None]
  - FACIAL BONES FRACTURE [None]
  - HYPOTENSION [None]
  - MEMORY IMPAIRMENT [None]
  - CONCUSSION [None]
  - DEHYDRATION [None]
